FAERS Safety Report 8170496-0 (Version None)
Quarter: 2012Q1

REPORT INFORMATION
  Report Type: 
  Country: None (occurrence: None)
  Receive Date: 20120228
  Receipt Date: 20120223
  Transmission Date: 20120608
  Serious: Yes (Other)
  Sender: FDA-Public Use
  Company Number: US-BAYER-2012-018045

PATIENT
  Age: 16 Year
  Sex: Female

DRUGS (2)
  1. DROSPIRENONE AND ETHINYL ESTRADIOL [Suspect]
     Dosage: UNK
     Dates: start: 20080501
  2. YASMIN [Suspect]
     Dosage: UNK
     Dates: start: 20080501

REACTIONS (1)
  - GALLBLADDER DISORDER [None]
